FAERS Safety Report 9421258 (Version 1)
Quarter: 2013Q3

REPORT INFORMATION
  Report Type: Spontaneous
  Country: US (occurrence: US)
  Receive Date: 20130725
  Receipt Date: 20130725
  Transmission Date: 20140515
  Serious: Yes (Other)
  Sender: FDA-Public Use
  Company Number: PHEH2013US015666

PATIENT
  Sex: Female

DRUGS (6)
  1. TEKTURNA [Suspect]
     Dosage: 150 MG, QD
  2. CHLORTHALIDONE [Suspect]
     Dosage: 25 MG, UNK
  3. CARVEDILOL [Concomitant]
     Dosage: 25 MG, HALF NOON/ HALF
  4. BABY ASPIRIN [Concomitant]
     Dosage: UNK
  5. SPIRONOLACTONE [Concomitant]
     Dosage: 25 MG, UNK
  6. SYNTHROID [Concomitant]
     Dosage: UNK

REACTIONS (12)
  - Retinal detachment [Unknown]
  - Eye haemorrhage [Unknown]
  - Eye disorder [Unknown]
  - Asthenopia [Unknown]
  - Loss of consciousness [Unknown]
  - Fall [Unknown]
  - Injury [Unknown]
  - Skin disorder [Unknown]
  - Skin haemorrhage [Unknown]
  - Feeling abnormal [Unknown]
  - Rash pruritic [Unknown]
  - Dizziness [Unknown]
